FAERS Safety Report 13081634 (Version 1)
Quarter: 2017Q1

REPORT INFORMATION
  Report Type: Spontaneous
  Country: US (occurrence: US)
  Receive Date: 20170103
  Receipt Date: 20170103
  Transmission Date: 20170428
  Serious: No
  Sender: FDA-Public Use
  Company Number: US-BAYER-2016-246188

PATIENT
  Age: 6 Year
  Sex: Male
  Weight: 33 kg

DRUGS (1)
  1. CLARITIN [Suspect]
     Active Substance: LORATADINE
     Dosage: UNK
     Route: 048
     Dates: start: 20160812, end: 20161228

REACTIONS (7)
  - Snoring [Not Recovered/Not Resolved]
  - Breath odour [Unknown]
  - Nasal congestion [Not Recovered/Not Resolved]
  - Unevaluable event [Unknown]
  - Rhinorrhoea [Not Recovered/Not Resolved]
  - Drug ineffective [Unknown]
  - Product use issue [Unknown]

NARRATIVE: CASE EVENT DATE: 20161208
